FAERS Safety Report 23911628 (Version 2)
Quarter: 2024Q3

REPORT INFORMATION
  Report Type: Spontaneous
  Country: US (occurrence: US)
  Receive Date: 20240528
  Receipt Date: 20240730
  Transmission Date: 20241016
  Serious: No
  Sender: SANOFI AVENTIS
  Company Number: US-SA-SAC20240522001005

PATIENT
  Age: 63 Year
  Sex: Female

DRUGS (2)
  1. DUPIXENT [Suspect]
     Active Substance: DUPILUMAB
     Indication: Neurodermatitis
     Dosage: 300 MG, QOW
     Route: 058
     Dates: start: 20240213, end: 20240318
  2. DOXYCYCLINE [Suspect]
     Active Substance: DOXYCYCLINE\DOXYCYCLINE HYCLATE

REACTIONS (4)
  - Granulomatous dermatitis [Not Recovered/Not Resolved]
  - Rash pruritic [Not Recovered/Not Resolved]
  - Eosinophil count increased [Not Recovered/Not Resolved]
  - Urticaria [Unknown]

NARRATIVE: CASE EVENT DATE: 20240101
